FAERS Safety Report 17982919 (Version 1)
Quarter: 2020Q3

REPORT INFORMATION
  Report Type: Report from Study
  Country: IT (occurrence: IT)
  Receive Date: 20200706
  Receipt Date: 20200706
  Transmission Date: 20201103
  Serious: Yes (Hospitalization)
  Sender: FDA-Public Use
  Company Number: IT-ACCORD-189095

PATIENT
  Age: 89 Year
  Sex: Female

DRUGS (9)
  1. LASIX [Suspect]
     Active Substance: FUROSEMIDE
     Indication: HYPERTENSION
     Dates: start: 20200101, end: 20200509
  2. FOLIC ACID. [Concomitant]
     Active Substance: FOLIC ACID
  3. BISOPROLOL [Concomitant]
     Active Substance: BISOPROLOL
  4. RAMIPRIL. [Suspect]
     Active Substance: RAMIPRIL
     Indication: HYPERTENSION
     Dates: start: 20200101, end: 20200509
  5. KANRENOL [Concomitant]
     Active Substance: CANRENOATE POTASSIUM
  6. CARDIRENE [Suspect]
     Active Substance: ASPIRIN DL-LYSINE
     Indication: THROMBOSIS PROPHYLAXIS
     Dates: start: 20200101, end: 20200509
  7. TRAZODONE [Concomitant]
     Active Substance: TRAZODONE HYDROCHLORIDE
  8. CIPRALEX [Concomitant]
     Active Substance: ESCITALOPRAM OXALATE
  9. LANSOX [Concomitant]
     Active Substance: LANSOPRAZOLE

REACTIONS (2)
  - Acute kidney injury [Unknown]
  - Nephritis [Unknown]

NARRATIVE: CASE EVENT DATE: 20200509
